FAERS Safety Report 24861576 (Version 5)
Quarter: 2025Q3

REPORT INFORMATION
  Report Type: Spontaneous
  Country: JP (occurrence: JP)
  Receive Date: 20250120
  Receipt Date: 20250810
  Transmission Date: 20251020
  Serious: Yes (Hospitalization, Other)
  Sender: ALEXION PHARMACEUTICALS
  Company Number: JP-ASTRAZENECA-250004939_013120_P_1

PATIENT
  Age: 76 Year
  Sex: Male
  Weight: 72 kg

DRUGS (10)
  1. DURVALUMAB [Suspect]
     Active Substance: DURVALUMAB
     Dosage: 1500 MILLIGRAM, Q4W
     Dates: start: 20241119, end: 20250114
  2. DURVALUMAB [Suspect]
     Active Substance: DURVALUMAB
     Indication: Hepatocellular carcinoma
     Dosage: 1500 MILLIGRAM, Q4W
     Dates: start: 20241120, end: 20241218
  3. TREMELIMUMAB [Suspect]
     Active Substance: TREMELIMUMAB
     Dates: start: 20241119, end: 20241119
  4. TREMELIMUMAB [Suspect]
     Active Substance: TREMELIMUMAB
     Indication: Hepatocellular carcinoma
  5. PREDNISOLONE [Concomitant]
     Active Substance: PREDNISOLONE
     Indication: Cytokine release syndrome
     Route: 065
  6. BEZAFIBRATE [Concomitant]
     Active Substance: BEZAFIBRATE
     Indication: Dyslipidaemia
  7. BEZAFIBRATE [Concomitant]
     Active Substance: BEZAFIBRATE
  8. ACARBOSE [Concomitant]
     Active Substance: ACARBOSE
     Indication: Type 2 diabetes mellitus
  9. ACARBOSE [Concomitant]
     Active Substance: ACARBOSE
  10. SENNOSIDES [Concomitant]
     Active Substance: SENNOSIDES
     Indication: Constipation

REACTIONS (6)
  - Cytokine release syndrome [Recovered/Resolved]
  - Back pain [Unknown]
  - Oedema [Unknown]
  - Hypertension [Unknown]
  - Gastrooesophageal reflux disease [Unknown]
  - Constipation [Unknown]

NARRATIVE: CASE EVENT DATE: 20241211
